FAERS Safety Report 8274961-7 (Version None)
Quarter: 2012Q2

REPORT INFORMATION
  Report Type: 
  Country: None (occurrence: None)
  Receive Date: 20120411
  Receipt Date: 20120404
  Transmission Date: 20120825
  Serious: Yes (Hospitalization)
  Sender: FDA-Public Use
  Company Number: KR-ELI_LILLY_AND_COMPANY-KR201204001573

PATIENT
  Age: 56 Year
  Sex: Male

DRUGS (1)
  1. HUMALOG MIX 50/50 [Suspect]
     Indication: TYPE 2 DIABETES MELLITUS
     Dosage: 34 U, BID
     Route: 058
     Dates: start: 20120301

REACTIONS (3)
  - COUGH [None]
  - PNEUMONIA [None]
  - PYREXIA [None]
